FAERS Safety Report 5684512-9 (Version None)
Quarter: 2008Q1

REPORT INFORMATION
  Report Type: 
  Country: None (occurrence: None)
  Receive Date: 20080328
  Receipt Date: 20080319
  Transmission Date: 20080703
  Serious: Yes (Other)
  Sender: FDA-Public Use
  Company Number: BR-ROCHE-554665

PATIENT
  Age: 6 Year
  Sex: Male
  Weight: 27 kg

DRUGS (5)
  1. RIVOTRIL [Suspect]
     Indication: CONVULSION PROPHYLAXIS
     Route: 048
     Dates: start: 20030101, end: 20080317
  2. DOGMATIL [Concomitant]
     Indication: CONVULSION PROPHYLAXIS
     Route: 065
  3. NEOZINE [Concomitant]
     Indication: CONVULSION PROPHYLAXIS
  4. TEGRETOL [Concomitant]
     Indication: CONVULSION PROPHYLAXIS
  5. FENERGAN [Concomitant]
     Indication: CONVULSION PROPHYLAXIS

REACTIONS (4)
  - COMA [None]
  - HYPERSENSITIVITY [None]
  - NASOPHARYNGITIS [None]
  - OPHTHALMOPLEGIA [None]
